FAERS Safety Report 14573361 (Version 1)
Quarter: 2018Q1

REPORT INFORMATION
  Report Type: Spontaneous
  Country: US (occurrence: US)
  Receive Date: 20180223
  Receipt Date: 20180223
  Transmission Date: 20180509
  Serious: Yes (Disabling)
  Sender: FDA-Public Use
  Company Number: None

PATIENT
  Age: 82 Year
  Sex: Male

DRUGS (6)
  1. AMLODIPINE [Suspect]
     Active Substance: AMLODIPINE BESYLATE
     Indication: SLEEP DISORDER
  2. HUMALOG [Suspect]
     Active Substance: INSULIN LISPRO
  3. BASAGLAR [Suspect]
     Active Substance: INSULIN GLARGINE
  4. NASAL SPRAY FLUTICASONE PROPIONATE [Concomitant]
  5. LOSARTAN AND HYDROCHLOROTHIAZIDE [Suspect]
     Active Substance: HYDROCHLOROTHIAZIDE\LOSARTAN POTASSIUM
  6. METFORMIN HCL DR 500 MG TABS [Suspect]
     Active Substance: METFORMIN HYDROCHLORIDE

REACTIONS (4)
  - Head discomfort [None]
  - Dizziness [None]
  - Fall [None]
  - Inner ear disorder [None]

NARRATIVE: CASE EVENT DATE: 20171001
